FAERS Safety Report 4359930-1 (Version None)
Quarter: 2004Q2

REPORT INFORMATION
  Report Type: 
  Country: None (occurrence: None)
  Receive Date: 20040518
  Receipt Date: 20040514
  Transmission Date: 20050107
  Serious: Yes (Death, Hospitalization)
  Sender: FDA-Public Use
  Company Number: US-BRISTOL-MYERS SQUIBB COMPANY-12586475

PATIENT
  Age: 49 Year
  Sex: Female
  Weight: 58 kg

DRUGS (4)
  1. COUMADIN [Suspect]
     Indication: PROPHYLAXIS
     Dates: start: 20030714
  2. ASPIRIN [Suspect]
  3. LISINOPRIL [Concomitant]
     Dates: end: 20030805
  4. DIPHENHYDRAMINE HCL [Concomitant]

REACTIONS (13)
  - ALPHA HAEMOLYTIC STREPTOCOCCAL INFECTION [None]
  - ASPHYXIA [None]
  - ASPIRATION [None]
  - CARDIAC ARREST [None]
  - FEBRILE NEUTROPENIA [None]
  - HAEMOPTYSIS [None]
  - INFECTION [None]
  - NECROSIS [None]
  - PNEUMONIA [None]
  - PULMONARY EMBOLISM [None]
  - PULMONARY HAEMORRHAGE [None]
  - PULMONARY INFARCTION [None]
  - PULMONARY OEDEMA [None]
